FAERS Safety Report 21019737 (Version 1)
Quarter: 2022Q2

REPORT INFORMATION
  Report Type: Spontaneous
  Country: US (occurrence: US)
  Receive Date: 20220628
  Receipt Date: 20220628
  Transmission Date: 20220721
  Serious: No
  Sender: FDA-Public Use
  Company Number: US-SA-SAC20220624001531

PATIENT
  Sex: Female

DRUGS (1)
  1. DUPIXENT [Suspect]
     Active Substance: DUPILUMAB
     Indication: Rhinitis allergic
     Route: 058
     Dates: start: 202205

REACTIONS (3)
  - Product use in unapproved indication [Unknown]
  - Injection site erythema [Not Recovered/Not Resolved]
  - Injection site dryness [Not Recovered/Not Resolved]
